FAERS Safety Report 24422546 (Version 1)
Quarter: 2024Q4

REPORT INFORMATION
  Report Type: Spontaneous
  Country: US (occurrence: US)
  Receive Date: 20241010
  Receipt Date: 20241010
  Transmission Date: 20250115
  Serious: Yes (Death, Hospitalization)
  Sender: MYLAN
  Company Number: US-MYLANLABS-2024M1090608

PATIENT
  Age: 53 Year
  Sex: Male

DRUGS (6)
  1. LENALIDOMIDE [Suspect]
     Active Substance: LENALIDOMIDE
     Indication: Myelodysplastic syndrome
     Dosage: UNK
     Route: 065
  2. LUSPATERCEPT [Suspect]
     Active Substance: LUSPATERCEPT
     Indication: Myelodysplastic syndrome
     Dosage: UNK
     Route: 065
  3. ISAVUCONAZONIUM [Concomitant]
     Active Substance: ISAVUCONAZONIUM
     Indication: Antifungal treatment
     Dosage: UNK
     Route: 065
  4. ISAVUCONAZONIUM [Concomitant]
     Active Substance: ISAVUCONAZONIUM
     Indication: Pneumonia fungal
  5. MICAFUNGIN [Concomitant]
     Active Substance: MICAFUNGIN SODIUM
     Indication: Antifungal treatment
     Dosage: UNK
     Route: 042
  6. MICAFUNGIN [Concomitant]
     Active Substance: MICAFUNGIN SODIUM
     Indication: Pneumonia fungal

REACTIONS (6)
  - Bronchopulmonary aspergillosis [Fatal]
  - Respiratory failure [Fatal]
  - Mediastinitis [Fatal]
  - Myelitis [Fatal]
  - Ascending flaccid paralysis [Fatal]
  - Febrile neutropenia [Unknown]
